FAERS Safety Report 8215613-9 (Version None)
Quarter: 2012Q1

REPORT INFORMATION
  Report Type: 
  Country: None (occurrence: None)
  Receive Date: 20120316
  Receipt Date: 20120305
  Transmission Date: 20120608
  Serious: Yes (Hospitalization)
  Sender: FDA-Public Use
  Company Number: US-ROCHE-1046260

PATIENT
  Sex: Female
  Weight: 98.972 kg

DRUGS (7)
  1. MORPHINE [Concomitant]
     Indication: PAIN
  2. DULCOLAX [Concomitant]
     Indication: CONSTIPATION
     Dosage: DOSE: 1 SUPPOSITORY
     Route: 054
  3. HYDROCODONE BITARTRATE [Concomitant]
     Indication: BREAKTHROUGH PAIN
     Route: 048
  4. XELODA [Suspect]
     Indication: BREAST CANCER METASTATIC
     Route: 048
     Dates: start: 20111030
  5. MIRALAX [Concomitant]
     Indication: CONSTIPATION
     Route: 048
  6. IXABEPILONE [Suspect]
     Indication: BREAST CANCER METASTATIC
     Dosage: DOSE: UNKNOWN
     Route: 065
     Dates: start: 20111030, end: 20111215
  7. NEURONTIN [Concomitant]
     Indication: NEUROPATHY PERIPHERAL
     Route: 048
     Dates: start: 20120201

REACTIONS (8)
  - DIZZINESS [None]
  - NAUSEA [None]
  - CONSTIPATION [None]
  - OEDEMA [None]
  - PYREXIA [None]
  - PNEUMOTHORAX [None]
  - DYSPNOEA [None]
  - PARAESTHESIA [None]
